FAERS Safety Report 10021177 (Version 1)
Quarter: 2014Q1

REPORT INFORMATION
  Report Type: Spontaneous
  Country: US (occurrence: US)
  Receive Date: 20140319
  Receipt Date: 20140319
  Transmission Date: 20141002
  Serious: No
  Sender: FDA-Public Use
  Company Number: US-PFIZER INC-2014075760

PATIENT
  Age: 58 Year
  Sex: Female
  Weight: 72.56 kg

DRUGS (4)
  1. XANAX [Suspect]
     Indication: NEOPLASM MALIGNANT
     Dosage: 0.25 MG, 3X/DAY
     Route: 048
  2. XANAX [Suspect]
     Indication: ANXIETY
     Dosage: 0.25 MG, (1/8 PART IN MORNING AND 1/4 PART IN EVENING)
     Route: 048
  3. XANAX [Suspect]
     Indication: NAUSEA
  4. PREVACID [Concomitant]
     Dosage: UNK

REACTIONS (4)
  - Off label use [Unknown]
  - Gastrointestinal disorder [Unknown]
  - Nasopharyngitis [Unknown]
  - Blood iron decreased [Unknown]
